FAERS Safety Report 5504868-7 (Version None)
Quarter: 2007Q4

REPORT INFORMATION
  Report Type: 
  Country: None (occurrence: None)
  Receive Date: 20071102
  Receipt Date: 20071023
  Transmission Date: 20080405
  Serious: Yes (Other)
  Sender: FDA-Public Use
  Company Number: DE-JNJFOC-20071000168

PATIENT
  Sex: Female
  Weight: 65 kg

DRUGS (2)
  1. INVEGA [Suspect]
     Route: 048
     Dates: start: 20070925
  2. INVEGA [Suspect]
     Indication: SCHIZOPHRENIA, PARANOID TYPE
     Route: 048
     Dates: start: 20070925

REACTIONS (2)
  - DYSKINESIA [None]
  - OROPHARYNGEAL SPASM [None]
